FAERS Safety Report 13154261 (Version 1)
Quarter: 2017Q1

REPORT INFORMATION
  Report Type: Spontaneous
  Country: US (occurrence: US)
  Receive Date: 20170126
  Receipt Date: 20170126
  Transmission Date: 20170428
  Serious: Yes (Hospitalization)
  Sender: FDA-Public Use
  Company Number: None

PATIENT
  Age: 54 Year
  Sex: Female
  Weight: 69.85 kg

DRUGS (10)
  1. TYLENOL EXTRA STRENGTH [Concomitant]
     Active Substance: ACETAMINOPHEN
  2. SIMVASTATIN. [Concomitant]
     Active Substance: SIMVASTATIN
  3. MULTIPLE VITAMINS [Concomitant]
     Active Substance: VITAMINS
  4. KLONOPIN [Concomitant]
     Active Substance: CLONAZEPAM
  5. LITHIUM. [Concomitant]
     Active Substance: LITHIUM
  6. VITAMIN C [Concomitant]
     Active Substance: ASCORBIC ACID
  7. CALCIUM [Concomitant]
     Active Substance: CALCIUM
  8. ATENOLOL. [Concomitant]
     Active Substance: ATENOLOL
  9. RISPERDAL [Suspect]
     Active Substance: RISPERIDONE
     Indication: BIPOLAR DISORDER
     Dosage: FREQUENCY - ONE PILL IN THE EVENING?STRENGTH - 2MG TO 1MG
     Route: 048
     Dates: start: 20031008, end: 20080101
  10. GEODON [Concomitant]
     Active Substance: ZIPRASIDONE HYDROCHLORIDE\ZIPRASIDONE MESYLATE

REACTIONS (4)
  - Pain [None]
  - Musculoskeletal pain [None]
  - Back pain [None]
  - Breast enlargement [None]

NARRATIVE: CASE EVENT DATE: 20040514
